FAERS Safety Report 20563671 (Version 3)
Quarter: 2022Q2

REPORT INFORMATION
  Report Type: Spontaneous
  Country: CH (occurrence: CH)
  Receive Date: 20220308
  Receipt Date: 20220421
  Transmission Date: 20220721
  Serious: Yes (Death, Hospitalization, Other)
  Sender: FDA-Public Use
  Company Number: CH-ABBVIE-22K-151-4297249-00

PATIENT
  Age: 68 Year
  Sex: Female

DRUGS (4)
  1. VENCLEXTA [Suspect]
     Active Substance: VENETOCLAX
     Indication: Acute myeloid leukaemia
     Route: 048
     Dates: start: 202108
  2. DACOGEN [Suspect]
     Active Substance: DECITABINE
     Indication: Acute myeloid leukaemia
     Route: 065
     Dates: start: 202108
  3. DACOGEN [Suspect]
     Active Substance: DECITABINE
     Route: 065
     Dates: start: 202110
  4. ICLUSIG [Concomitant]
     Active Substance: PONATINIB
     Indication: Acute myeloid leukaemia

REACTIONS (3)
  - Graft versus host disease [Fatal]
  - Leukaemia [Recovering/Resolving]
  - Off label use [Unknown]

NARRATIVE: CASE EVENT DATE: 20211104
